FAERS Safety Report 4906067-6 (Version None)
Quarter: 2006Q1

REPORT INFORMATION
  Report Type: 
  Country: None (occurrence: None)
  Receive Date: 20060207
  Receipt Date: 20060204
  Transmission Date: 20060701
  Serious: Yes (Life-Threatening, Hospitalization)
  Sender: FDA-Public Use
  Company Number: 219106

PATIENT
  Age: 67 Year
  Sex: Male
  Weight: 64 kg

DRUGS (1)
  1. AVASTIN [Suspect]
     Dosage: 480 MG, UNK, INTRAVENOUS
     Route: 042
     Dates: start: 20050817, end: 20050902

REACTIONS (1)
  - GASTROINTESTINAL PERFORATION [None]
